FAERS Safety Report 4948920-3 (Version None)
Quarter: 2006Q1

REPORT INFORMATION
  Report Type: 
  Country: None (occurrence: None)
  Receive Date: 20060321
  Receipt Date: 20051223
  Transmission Date: 20060701
  Serious: Yes (Death, Hospitalization)
  Sender: FDA-Public Use
  Company Number: PHRM2005FR03351

PATIENT
  Age: 68 Year
  Sex: Male
  Weight: 68 kg

DRUGS (10)
  1. TARDYFERON [Concomitant]
     Route: 048
  2. VALIUM [Concomitant]
  3. CALCIDIA [Concomitant]
     Route: 048
  4. EUROBIOL [Concomitant]
     Route: 048
  5. LESCOL [Suspect]
     Dosage: 40 MG, QD
     Route: 048
     Dates: end: 20051115
  6. LASILIX [Suspect]
     Indication: RENAL FAILURE
     Dosage: 500 MG, QD
     Route: 048
     Dates: end: 20051115
  7. HEXAQUINE [Suspect]
     Dosage: 1 DF, QD
     Dates: end: 20051115
  8. UN-ALFA [Suspect]
     Dosage: 4 DF/WEEK
     Route: 048
     Dates: end: 20051115
  9. CELECTOL [Suspect]
     Indication: ESSENTIAL HYPERTENSION
     Dosage: 200 MG, QD
     Route: 048
     Dates: end: 20051115
  10. NEORECORMON [Suspect]
     Indication: RENAL FAILURE
     Dosage: 2 KIU, QW
     Route: 058
     Dates: end: 20051112

REACTIONS (11)
  - AGITATION [None]
  - BIOPSY PROSTATE [None]
  - BLOOD GLUCOSE ABNORMAL [None]
  - CEREBRAL ATROPHY [None]
  - CONFUSIONAL STATE [None]
  - DEPRESSED LEVEL OF CONSCIOUSNESS [None]
  - EATING DISORDER [None]
  - HEADACHE [None]
  - HYPERTENSION [None]
  - HYPERTENSIVE ENCEPHALOPATHY [None]
  - HYPOGLYCAEMIA UNAWARENESS [None]
